FAERS Safety Report 25153325 (Version 2)
Quarter: 2025Q2

REPORT INFORMATION
  Report Type: Spontaneous
  Country: PH (occurrence: PH)
  Receive Date: 20250403
  Receipt Date: 20250613
  Transmission Date: 20250717
  Serious: Yes (Other)
  Sender: BRISTOL-MYERS SQUIBB COMPANY
  Company Number: PH-BRISTOL-MYERS SQUIBB COMPANY-2025-012506

PATIENT
  Age: 53 Year
  Sex: Male

DRUGS (2)
  1. SPRYCEL [Suspect]
     Active Substance: DASATINIB
     Indication: Chronic myeloid leukaemia
     Dosage: 100MG (2 X 50MG TABLETS)
  2. SPRYCEL [Suspect]
     Active Substance: DASATINIB
     Dosage: 2 X 50 MG TABLETS

REACTIONS (3)
  - Thrombocytopenia [Unknown]
  - Diabetic retinopathy [Unknown]
  - Cataract [Unknown]
